FAERS Safety Report 7031598-5 (Version None)
Quarter: 2010Q4

REPORT INFORMATION
  Report Type: 
  Country: None (occurrence: None)
  Receive Date: 20101006
  Receipt Date: 20101006
  Transmission Date: 20110411
  Serious: Yes (Hospitalization)
  Sender: FDA-Public Use
  Company Number: None

PATIENT
  Sex: Female
  Weight: 56.6996 kg

DRUGS (1)
  1. MULTAQ [Suspect]
     Indication: CARDIAC DISORDER
     Dosage: 400 MG 1 TWICE DAILY BY MOUTH / 047
     Route: 048
     Dates: start: 20100917, end: 20100918

REACTIONS (4)
  - DIZZINESS [None]
  - FEAR [None]
  - NAUSEA [None]
  - SYNCOPE [None]
